FAERS Safety Report 7204457-2 (Version None)
Quarter: 2010Q4

REPORT INFORMATION
  Report Type: 
  Country: None (occurrence: None)
  Receive Date: 20101230
  Receipt Date: 20101230
  Transmission Date: 20110411
  Serious: Yes (Hospitalization)
  Sender: FDA-Public Use
  Company Number: NL-ABBOTT-10P-114-0659864-00

PATIENT
  Sex: Female
  Weight: 70 kg

DRUGS (5)
  1. LUCRIN DEPOT 11.25 MG [Suspect]
     Indication: BREAST CANCER
     Route: 058
     Dates: start: 20090501
  2. TAMOXIFEN CITRATE [Concomitant]
     Indication: BREAST CANCER
     Dosage: 20MG DAILY
     Dates: start: 20090501
  3. CHLOROAMPHENICOL [Concomitant]
     Indication: PANOPHTHALMITIS
     Dosage: AS NEEDED
     Dates: start: 20070101
  4. CHLOROAMPHENICOL [Concomitant]
     Indication: ANKYLOSING SPONDYLITIS
  5. HYDROCORTISONE [Concomitant]
     Indication: PRURITUS
     Dosage: 1 APPLICATION 1 TO 2 TIMES A DAILY
     Route: 061
     Dates: start: 20070101

REACTIONS (6)
  - HOT FLUSH [None]
  - HYPERHIDROSIS [None]
  - MEMORY IMPAIRMENT [None]
  - OPEN WOUND [None]
  - RIB FRACTURE [None]
  - ROAD TRAFFIC ACCIDENT [None]
